FAERS Safety Report 10145675 (Version 1)
Quarter: 2014Q2

REPORT INFORMATION
  Report Type: Report from Study
  Country: US (occurrence: US)
  Receive Date: 20140501
  Receipt Date: 20140501
  Transmission Date: 20141212
  Serious: No
  Sender: FDA-Public Use
  Company Number: US-ABBVIE-13P-163-1111723-00

PATIENT
  Age: 57 Year
  Sex: Female
  Weight: 63.11 kg

DRUGS (1)
  1. CREON [Suspect]
     Indication: PANCREATITIS ACUTE
     Dates: start: 2011

REACTIONS (1)
  - Urinary tract infection [Recovered/Resolved]
